FAERS Safety Report 23972621 (Version 2)
Quarter: 2024Q3

REPORT INFORMATION
  Report Type: Spontaneous
  Country: US (occurrence: US)
  Receive Date: 20240613
  Receipt Date: 20240715
  Transmission Date: 20241017
  Serious: Yes (Hospitalization)
  Sender: AUROBINDO
  Company Number: US-AUROBINDO-AUR-APL-2024-028463

PATIENT
  Sex: Male
  Weight: 25.4 kg

DRUGS (1)
  1. BREXPIPRAZOLE [Suspect]
     Active Substance: BREXPIPRAZOLE
     Indication: Product used for unknown indication
     Dosage: UNK (ACCIDENTAL INGESTION OF FIVE TO EIGHT ORAL BREXPIPRAZOLE 2MG TABLETS (MEDICATION ERROR))
     Route: 048

REACTIONS (14)
  - Dysarthria [Unknown]
  - Drooling [Unknown]
  - Dysphagia [Unknown]
  - Balance disorder [Unknown]
  - Flushing [Unknown]
  - Nystagmus [Unknown]
  - Tremor [Unknown]
  - Mental status changes [Unknown]
  - Tachycardia [Unknown]
  - Rash erythematous [Unknown]
  - Crying [Unknown]
  - Ataxia [Unknown]
  - Medication error [Unknown]
  - Toxicity to various agents [Unknown]
